FAERS Safety Report 12397780 (Version 1)
Quarter: 2016Q2

REPORT INFORMATION
  Report Type: Report from Study
  Country: US (occurrence: US)
  Receive Date: 20160524
  Receipt Date: 20160524
  Transmission Date: 20160815
  Serious: Yes (Hospitalization)
  Sender: FDA-Public Use
  Company Number: US-EISAI MEDICAL RESEARCH-EC-2016-014988

PATIENT
  Sex: Male

DRUGS (25)
  1. LENVIMA [Suspect]
     Active Substance: LENVATINIB
     Route: 048
     Dates: start: 20160330, end: 2016
  2. LENVIMA [Suspect]
     Active Substance: LENVATINIB
     Route: 048
     Dates: start: 20160407, end: 20160517
  3. CYANOCOBALAMIN. [Concomitant]
     Active Substance: CYANOCOBALAMIN
  4. ALLOPURINOL. [Concomitant]
     Active Substance: ALLOPURINOL
  5. STOOL SOFTNER [Concomitant]
     Active Substance: DOCUSATE SODIUM
  6. PROBIOTIC [Concomitant]
     Active Substance: PROBIOTICS NOS
  7. VITAMIN D [Concomitant]
     Active Substance: CHOLECALCIFEROL
  8. FIBER THERAPY [Concomitant]
     Active Substance: METHYLCELLULOSE (4000 MPA.S)
  9. LOSARTAN. [Concomitant]
     Active Substance: LOSARTAN
  10. COZAAR [Concomitant]
     Active Substance: LOSARTAN POTASSIUM
  11. IMODIUM [Concomitant]
     Active Substance: LOPERAMIDE HYDROCHLORIDE
  12. VITAMIN B12 [Concomitant]
     Active Substance: CYANOCOBALAMIN
  13. VITAMIN C [Concomitant]
     Active Substance: ASCORBIC ACID
  14. ZETIA [Concomitant]
     Active Substance: EZETIMIBE
  15. NIFEDIPINE. [Concomitant]
     Active Substance: NIFEDIPINE
  16. GLUCOSAMINE-CHONDROITIN [Concomitant]
     Active Substance: CHONDROITIN SULFATE (BOVINE)\GLUCOSAMINE SULFATE
  17. OCUVITE [Concomitant]
     Active Substance: VITAMINS
  18. MAGNESIUM [Concomitant]
     Active Substance: MAGNESIUM
  19. HYDRALAZINE [Concomitant]
     Active Substance: HYDRALAZINE HYDROCHLORIDE
  20. LENVIMA [Suspect]
     Active Substance: LENVATINIB
     Indication: THYROID CANCER
     Route: 048
     Dates: start: 20160227, end: 20160325
  21. SYNTHROID [Concomitant]
     Active Substance: LEVOTHYROXINE SODIUM
  22. LASIX [Concomitant]
     Active Substance: FUROSEMIDE
  23. ASPIRIN. [Concomitant]
     Active Substance: ASPIRIN
  24. CITRACAL+D [Concomitant]
  25. PRAVASTATIN [Concomitant]
     Active Substance: PRAVASTATIN\PRAVASTATIN SODIUM

REACTIONS (7)
  - Diarrhoea [Unknown]
  - Hypertension [Unknown]
  - Fatigue [Unknown]
  - Abdominal discomfort [Unknown]
  - Epistaxis [Recovering/Resolving]
  - Myalgia [Unknown]
  - Dyspepsia [Unknown]

NARRATIVE: CASE EVENT DATE: 2016
